FAERS Safety Report 13230872 (Version 1)
Quarter: 2017Q1

REPORT INFORMATION
  Report Type: Spontaneous
  Country: GB (occurrence: GB)
  Receive Date: 20170214
  Receipt Date: 20170214
  Transmission Date: 20170428
  Serious: Yes (Other)
  Sender: FDA-Public Use
  Company Number: GB-ABBVIE-17P-167-1873663-00

PATIENT
  Age: 20 Year
  Sex: Female

DRUGS (2)
  1. EPILIM [Suspect]
     Active Substance: VALPROATE SODIUM
     Indication: SEIZURE
     Route: 065
     Dates: start: 2002, end: 201610
  2. EPILIM [Suspect]
     Active Substance: VALPROATE SODIUM
     Route: 065
     Dates: start: 201611

REACTIONS (4)
  - Alopecia [Unknown]
  - Seizure [Unknown]
  - Condition aggravated [Unknown]
  - Haematochezia [Unknown]

NARRATIVE: CASE EVENT DATE: 201611
